FAERS Safety Report 10597717 (Version 1)
Quarter: 2014Q4

REPORT INFORMATION
  Report Type: Spontaneous
  Country: US (occurrence: None)
  Receive Date: 20141120
  Receipt Date: 20141120
  Transmission Date: 20150529
  Serious: No
  Sender: FDA-Public Use
  Company Number: None

PATIENT
  Age: 85 Year
  Sex: Female
  Weight: 64.5 kg

DRUGS (13)
  1. ATROVASTATIN [Concomitant]
     Active Substance: ATORVASTATIN CALCIUM
  2. OXYBUTININE [Concomitant]
     Active Substance: OXYBUTYNIN\OXYBUTYNIN CHLORIDE
  3. SKIN, NAILS, HAIR SUPPLEMENT [Concomitant]
  4. WALGREENS TRIPLE ANTIBIOTIC [Suspect]
     Active Substance: BACITRACIN ZINC\NEOMYCIN SULFATE\POLYMYXIN B SULFATE
     Indication: SKIN ABRASION
     Dosage: 3.5MG IN 28GM CONTAINER ?AMOUNT EQUIVALENT TO TIP OF FINGER ?1-3 TIMES A DAY?ON GAUZE BANDAGE LAID ON INJURY
     Dates: start: 20141110, end: 20141112
  5. PROBIOTICS [Concomitant]
     Active Substance: PROBIOTICS NOS
  6. FISH OILS [Concomitant]
  7. GLUCOSMINE CHRONDOTIN [Concomitant]
  8. CALCIUM WITH D3 [Concomitant]
  9. LEVOTHROXINE SODIUM [Concomitant]
     Active Substance: LEVOTHYROXINE SODIUM
  10. ONE-A-DAY NOS [Concomitant]
     Active Substance: MINERALS\VITAMINS
  11. DHEA [Concomitant]
     Active Substance: DEHYDROEPIANDROSTERONE-3-SULFATE SODIUM
  12. 81MG ASPIRIN [Concomitant]
  13. GINKO BILOBA [Concomitant]

REACTIONS (3)
  - Dermatitis [None]
  - Product label issue [None]
  - Peripheral swelling [None]
